FAERS Safety Report 16543507 (Version 2)
Quarter: 2019Q3

REPORT INFORMATION
  Report Type: Spontaneous
  Country: ES (occurrence: ES)
  Receive Date: 20190709
  Receipt Date: 20190816
  Transmission Date: 20191004
  Serious: Yes (Hospitalization)
  Sender: FDA-Public Use
  Company Number: ES-ACCORD-136541

PATIENT
  Age: 25 Year
  Sex: Female

DRUGS (9)
  1. ATROPINE. [Concomitant]
     Active Substance: ATROPINE
     Indication: ANAESTHESIA
  2. QUETIAPINE. [Suspect]
     Active Substance: QUETIAPINE
     Indication: PSYCHOTIC SYMPTOM
  3. OLANZAPINE. [Suspect]
     Active Substance: OLANZAPINE
     Indication: PSYCHOTIC SYMPTOM
  4. ARIPIPRAZOLE. [Suspect]
     Active Substance: ARIPIPRAZOLE
     Indication: SCHIZOPHRENIA
     Dosage: ALSO RECEIVED 30MG/DAY
  5. AMISULPRIDE [Suspect]
     Active Substance: AMISULPRIDE
     Indication: PSYCHOTIC SYMPTOM
  6. CLOZAPINE. [Suspect]
     Active Substance: CLOZAPINE
     Indication: SCHIZOPHRENIA
     Dosage: DOSE INCREASED UPTO 250 MG/D AND THEN REDUCED UPTO 200 MG
  7. HALOPERIDOL. [Suspect]
     Active Substance: HALOPERIDOL
     Indication: SCHIZOPHRENIA
  8. THIOPENTAL [Concomitant]
     Active Substance: THIOPENTAL
     Indication: ANAESTHESIA
  9. SUXAMETHONIUM [Concomitant]
     Active Substance: SUCCINYLCHOLINE
     Indication: ANAESTHESIA

REACTIONS (10)
  - Intentional self-injury [Unknown]
  - Dizziness [Recovered/Resolved]
  - Hallucination, auditory [Unknown]
  - Exposure during pregnancy [Unknown]
  - Drug tolerance decreased [Unknown]
  - Dystonia [Recovered/Resolved]
  - Condition aggravated [Unknown]
  - Aggression [Unknown]
  - Somnolence [Recovered/Resolved]
  - Sedation [Recovered/Resolved]
